FAERS Safety Report 4932701-0 (Version None)
Quarter: 2006Q1

REPORT INFORMATION
  Report Type: 
  Country: None (occurrence: None)
  Receive Date: 20060301
  Receipt Date: 20060220
  Transmission Date: 20060701
  Serious: Yes (Hospitalization)
  Sender: FDA-Public Use
  Company Number: 2005BI021643

PATIENT
  Age: 58 Year
  Sex: Female

DRUGS (8)
  1. AVONEX [Suspect]
     Indication: MULTIPLE SCLEROSIS
     Dosage: 30 UG; QW; IM
     Route: 030
     Dates: start: 20050921
  2. SYNTHROID [Concomitant]
  3. SANCTURA [Concomitant]
  4. KLONOPIN [Concomitant]
  5. WELLBUTRIN XL [Concomitant]
  6. CELEBREX [Concomitant]
  7. DEPO-ESTRADIOL [Concomitant]
  8. ZANTAC [Concomitant]

REACTIONS (3)
  - APHASIA [None]
  - COORDINATION ABNORMAL [None]
  - DEHYDRATION [None]
